FAERS Safety Report 22316112 (Version 2)
Quarter: 2023Q2

REPORT INFORMATION
  Report Type: Spontaneous
  Country: US (occurrence: US)
  Receive Date: 20230512
  Receipt Date: 20230608
  Transmission Date: 20230721
  Serious: Yes (Other)
  Sender: FDA-Public Use
  Company Number: US-BRISTOL-MYERS SQUIBB COMPANY-2023-064899

PATIENT
  Age: 73 Year
  Sex: Male

DRUGS (1)
  1. IDHIFA [Suspect]
     Active Substance: ENASIDENIB MESYLATE
     Indication: Acute myeloid leukaemia
     Dosage: 100MG ONCE DAILY
     Route: 048
     Dates: start: 20230415, end: 20230605

REACTIONS (4)
  - Acute myeloid leukaemia [Unknown]
  - Swelling [Unknown]
  - Confusional state [Unknown]
  - Nausea [Unknown]
